FAERS Safety Report 8954196 (Version 1)
Quarter: 2012Q4

REPORT INFORMATION
  Report Type: 
  Country: US (occurrence: US)
  Receive Date: 20121207
  Receipt Date: 20121207
  Transmission Date: 20130627
  Serious: Yes (Hospitalization, Other)
  Sender: FDA-Public Use
  Company Number: US-SANOFI-AVENTIS-2012SA087491

PATIENT
  Sex: Female

DRUGS (2)
  1. LANTUS [Suspect]
     Indication: DIABETES
     Route: 058
  2. HUMULIN [Concomitant]
     Indication: DIABETES

REACTIONS (4)
  - Road traffic accident [Unknown]
  - Diabetic hyperglycaemic coma [Unknown]
  - Renal failure [Unknown]
  - Hyperglycaemia [Unknown]
